FAERS Safety Report 6497219-5 (Version None)
Quarter: 2009Q4

REPORT INFORMATION
  Report Type: 
  Country: None (occurrence: None)
  Receive Date: 20091215
  Receipt Date: 20090812
  Transmission Date: 20100525
  Serious: No
  Sender: FDA-Public Use
  Company Number: A0793966A

PATIENT
  Sex: Male

DRUGS (7)
  1. AVODART [Suspect]
     Indication: BENIGN PROSTATIC HYPERPLASIA
     Dosage: .5U PER DAY
     Route: 048
  2. POTASSIUM [Concomitant]
  3. LASIX [Concomitant]
  4. DIGOXIN [Concomitant]
  5. NORVASC [Concomitant]
  6. MULTI-VITAMIN [Concomitant]
  7. IRON SUPPLEMENT [Concomitant]

REACTIONS (2)
  - MEDICATION RESIDUE [None]
  - PRODUCT QUALITY ISSUE [None]
